FAERS Safety Report 11281150 (Version 1)
Quarter: 2015Q3

REPORT INFORMATION
  Report Type: Spontaneous
  Country: CN (occurrence: CN)
  Receive Date: 20150717
  Receipt Date: 20150717
  Transmission Date: 20151125
  Serious: Yes (Hospitalization, Other)
  Sender: FDA-Public Use
  Company Number: CN-BRISTOL-MYERS SQUIBB COMPANY-BMS-2015-046723

PATIENT
  Age: 65 Year
  Sex: Male

DRUGS (2)
  1. GLUCOPHAGE [Suspect]
     Active Substance: METFORMIN HYDROCHLORIDE
     Indication: DIABETES MELLITUS
     Dosage: .25 G, TID FOR 6 MONTHS
     Route: 048
     Dates: start: 2012
  2. GLUCOPHAGE [Suspect]
     Active Substance: METFORMIN HYDROCHLORIDE
     Dosage: 0.5 G, TID
     Route: 048

REACTIONS (1)
  - Cataract operation [Unknown]

NARRATIVE: CASE EVENT DATE: 201506
